FAERS Safety Report 18601796 (Version 1)
Quarter: 2020Q4

REPORT INFORMATION
  Report Type: Report from Study
  Country: IE (occurrence: IE)
  Receive Date: 20201210
  Receipt Date: 20201210
  Transmission Date: 20210114
  Serious: Yes (Other)
  Sender: FDA-Public Use
  Company Number: IE-TEVA-2020-IE-1857551

PATIENT
  Sex: Female

DRUGS (1)
  1. AJOVY [Suspect]
     Active Substance: FREMANEZUMAB-VFRM
     Indication: MIGRAINE
     Route: 058
     Dates: start: 20201112

REACTIONS (5)
  - Hypersensitivity [Unknown]
  - Swelling [Unknown]
  - Swollen tongue [Unknown]
  - Swelling face [Unknown]
  - Influenza like illness [Unknown]
